FAERS Safety Report 14214019 (Version 1)
Quarter: 2017Q4

REPORT INFORMATION
  Report Type: Spontaneous
  Country: US (occurrence: US)
  Receive Date: 20171122
  Receipt Date: 20171122
  Transmission Date: 20180321
  Serious: No
  Sender: FDA-Public Use
  Company Number: US-CELGENEUS-USA-20171105948

PATIENT
  Sex: Female

DRUGS (3)
  1. BLISOVI 24 [Concomitant]
     Indication: PRODUCT USED FOR UNKNOWN INDICATION
     Dosage: 1/20
     Route: 065
     Dates: start: 20171017
  2. OTEZLA [Suspect]
     Active Substance: APREMILAST
     Indication: PSORIATIC ARTHROPATHY
     Dosage: 60 MILLIGRAM
     Route: 048
     Dates: start: 20170626
  3. NORETH/ETHIN [Concomitant]
     Indication: CONTRACEPTION
     Dosage: 1/20
     Route: 065
     Dates: start: 20160415

REACTIONS (2)
  - Psoriatic arthropathy [Unknown]
  - Drug dose omission [Unknown]

NARRATIVE: CASE EVENT DATE: 2017
